FAERS Safety Report 20719850 (Version 16)
Quarter: 2022Q3

REPORT INFORMATION
  Report Type: Report from Study
  Country: IL (occurrence: None)
  Receive Date: 20220418
  Receipt Date: 20220801
  Transmission Date: 20221027
  Serious: Yes (Hospitalization)
  Sender: FDA-Public Use
  Company Number: IL-Eisai Medical Research-EC-2022-112993

PATIENT
  Age: 75 Year
  Sex: Male
  Weight: 64.9 kg

DRUGS (18)
  1. LENVATINIB [Suspect]
     Active Substance: LENVATINIB
     Indication: Renal cell carcinoma stage IV
     Route: 048
     Dates: start: 20220313, end: 20220402
  2. LENVATINIB [Suspect]
     Active Substance: LENVATINIB
     Indication: Metastases to lymph nodes
     Route: 048
     Dates: start: 20220531
  3. LENVATINIB [Suspect]
     Active Substance: LENVATINIB
     Indication: Metastases to bone
  4. LENVATINIB [Suspect]
     Active Substance: LENVATINIB
     Indication: Metastases to lung
  5. PEMBROLIZUMAB [Suspect]
     Active Substance: PEMBROLIZUMAB
     Indication: Renal cell carcinoma stage IV
     Route: 041
     Dates: start: 20220313, end: 20220313
  6. PEMBROLIZUMAB [Suspect]
     Active Substance: PEMBROLIZUMAB
     Indication: Metastases to lymph nodes
  7. PEMBROLIZUMAB [Suspect]
     Active Substance: PEMBROLIZUMAB
     Indication: Metastases to bone
  8. PEMBROLIZUMAB [Suspect]
     Active Substance: PEMBROLIZUMAB
     Indication: Metastases to lung
  9. BELZUTIFAN [Suspect]
     Active Substance: BELZUTIFAN
     Indication: Renal cell carcinoma stage IV
     Route: 048
     Dates: start: 20220313, end: 20220402
  10. BELZUTIFAN [Suspect]
     Active Substance: BELZUTIFAN
     Indication: Metastases to lymph nodes
     Route: 048
     Dates: start: 20220531
  11. BELZUTIFAN [Suspect]
     Active Substance: BELZUTIFAN
     Indication: Metastases to bone
  12. BELZUTIFAN [Suspect]
     Active Substance: BELZUTIFAN
     Indication: Metastases to lung
  13. METAMIZOLE [Concomitant]
     Active Substance: METAMIZOLE
     Dates: start: 2021, end: 20220625
  14. ELIDEL [Concomitant]
     Active Substance: PIMECROLIMUS
     Dates: start: 20220327
  15. CLOBETASOL [Concomitant]
     Active Substance: CLOBETASOL
     Dates: start: 20220327, end: 20220407
  16. MOMETASONE FUROATE [Concomitant]
     Active Substance: MOMETASONE FUROATE
     Dates: start: 20220321
  17. CANNABIS SATIVA FLOWERING TOP [Concomitant]
     Active Substance: CANNABIS SATIVA FLOWERING TOP
     Dates: start: 202203
  18. ZALDIAR [Concomitant]
     Active Substance: ACETAMINOPHEN\TRAMADOL HYDROCHLORIDE
     Dates: start: 202203

REACTIONS (1)
  - Hepatic enzyme increased [Recovered/Resolved]

NARRATIVE: CASE EVENT DATE: 20220403
